FAERS Safety Report 5430664-5 (Version None)
Quarter: 2007Q3

REPORT INFORMATION
  Report Type: 
  Country: None (occurrence: None)
  Receive Date: 20070830
  Receipt Date: 20070322
  Transmission Date: 20080115
  Serious: No
  Sender: FDA-Public Use
  Company Number: US-KINGPHARMUSA00001-K200700355

PATIENT

DRUGS (1)
  1. FLORINEF [Suspect]
     Dosage: .1 MG, UNK

REACTIONS (1)
  - MUSCULOSKELETAL PAIN [None]
